FAERS Safety Report 25824034 (Version 2)
Quarter: 2025Q3

REPORT INFORMATION
  Report Type: Spontaneous
  Country: CN (occurrence: CN)
  Receive Date: 20250919
  Receipt Date: 20250923
  Transmission Date: 20251020
  Serious: Yes (Other)
  Sender: BIOVITRUM
  Company Number: CN-BIOVITRUM-2025-CN-012715

PATIENT
  Age: 58 Year
  Sex: Female
  Weight: 60 kg

DRUGS (6)
  1. AVATROMBOPAG [Suspect]
     Active Substance: AVATROMBOPAG
     Indication: Immune thrombocytopenia
     Route: 048
     Dates: start: 202407
  2. AVATROMBOPAG [Suspect]
     Active Substance: AVATROMBOPAG
     Route: 048
     Dates: start: 202409
  3. AVATROMBOPAG [Suspect]
     Active Substance: AVATROMBOPAG
     Route: 048
  4. OMEPRAZOLE [Concomitant]
     Active Substance: OMEPRAZOLE
     Indication: Gastric mucosal lesion
  5. PANTOPRAZOLE SODIUM [Concomitant]
     Active Substance: PANTOPRAZOLE SODIUM
     Indication: Gastritis erosive
  6. DEXAMETHASONE SODIUM PHOSPHATE [Concomitant]
     Active Substance: DEXAMETHASONE SODIUM PHOSPHATE
     Indication: Platelet count decreased
     Route: 042

REACTIONS (2)
  - Acute myocardial infarction [Unknown]
  - Cardiac ventricular thrombosis [Recovered/Resolved]
